FAERS Safety Report 10682301 (Version 1)
Quarter: 2014Q4

REPORT INFORMATION
  Report Type: Spontaneous
  Country: PL (occurrence: PL)
  Receive Date: 20141230
  Receipt Date: 20141230
  Transmission Date: 20150529
  Serious: Yes (Other)
  Sender: FDA-Public Use
  Company Number: PHHY2014PL168186

PATIENT
  Age: 57 Year
  Sex: Male

DRUGS (1)
  1. ACETYLSALICYLIC ACID [Suspect]
     Active Substance: ASPIRIN
     Indication: SPINAL OSTEOARTHRITIS
     Dosage: 300 MG, UNK
     Route: 065

REACTIONS (5)
  - Nasal polyps [Unknown]
  - Dyspnoea [Recovered/Resolved]
  - Rhinitis [Recovered/Resolved]
  - Drug hypersensitivity [Unknown]
  - Asthma [Unknown]
